FAERS Safety Report 24569367 (Version 1)
Quarter: 2024Q4

REPORT INFORMATION
  Report Type: Spontaneous
  Country: US (occurrence: None)
  Receive Date: 20241030
  Receipt Date: 20241030
  Transmission Date: 20250115
  Serious: No
  Sender: Public
  Company Number: None

PATIENT
  Age: 35 Year
  Sex: Male
  Weight: 52.1 kg

DRUGS (2)
  1. TRANEXAMIC ACID [Suspect]
     Active Substance: TRANEXAMIC ACID
     Indication: Gastrointestinal haemorrhage
     Dosage: 1000 MG ONCE INTRAVENOUS BOLUS
     Route: 040
  2. 0.9% NaCl 0.9% piggyback [Concomitant]
     Dates: start: 20240908, end: 20240908

REACTIONS (1)
  - Dyschromatopsia [None]

NARRATIVE: CASE EVENT DATE: 20240908
